FAERS Safety Report 13983699 (Version 1)
Quarter: 2017Q3

REPORT INFORMATION
  Report Type: Spontaneous
  Country: US (occurrence: US)
  Receive Date: 20170918
  Receipt Date: 20170918
  Transmission Date: 20171128
  Serious: No
  Sender: FDA-Public Use
  Company Number: US-SUNOVION-2017SUN003976

PATIENT
  Age: 78 Year
  Sex: Female
  Weight: 40.82 kg

DRUGS (4)
  1. ALBUTEROL. [Concomitant]
     Active Substance: ALBUTEROL
  2. SODIUM CHLORIDE. [Concomitant]
     Active Substance: SODIUM CHLORIDE
  3. IPRATROPIUM BROMIDE. [Concomitant]
     Active Substance: IPRATROPIUM BROMIDE
  4. BROVANA [Suspect]
     Active Substance: ARFORMOTEROL TARTRATE
     Indication: LUNG DISORDER
     Dosage: 15MCG/2ML, BID
     Route: 055
     Dates: start: 201709

REACTIONS (2)
  - Off label use [Unknown]
  - Nausea [Unknown]

NARRATIVE: CASE EVENT DATE: 201709
